FAERS Safety Report 10651762 (Version 1)
Quarter: 2014Q4

REPORT INFORMATION
  Report Type: Spontaneous
  Country: NL (occurrence: None)
  Receive Date: 20141211
  Receipt Date: 20141211
  Transmission Date: 20150529
  Serious: Yes (Other)
  Sender: FDA-Public Use
  Company Number: 2014NL009756

PATIENT
  Age: 69 Year
  Sex: Male

DRUGS (4)
  1. CALCIUM+VIT D (CALCIUM, COLECALCIFEROL) [Concomitant]
  2. PANTOPRAZOL (PANTOPRAZOLE SODIUM SESQUIHYDRATE) [Concomitant]
     Active Substance: PANTOPRAZOLE SODIUM
  3. PREDNISON (PREDNISONE) [Concomitant]
  4. ELIGARD [Suspect]
     Active Substance: LEUPROLIDE ACETATE
     Indication: PROSTATE CANCER
     Dosage: 45 MG, EVERY 6 MONTHS, SUBCUTANEOUS
     Route: 058
     Dates: start: 20111209

REACTIONS (2)
  - Prostate cancer [None]
  - Prostatic specific antigen increased [None]

NARRATIVE: CASE EVENT DATE: 20140902
